FAERS Safety Report 4542093-7 (Version None)
Quarter: 2004Q4

REPORT INFORMATION
  Report Type: 
  Country: None (occurrence: None)
  Receive Date: 20041230
  Receipt Date: 20041019
  Transmission Date: 20050328
  Serious: Yes (Life-Threatening, Hospitalization, Disabling)
  Sender: FDA-Public Use
  Company Number: US-MERCK-0410USA02915

PATIENT
  Age: 56 Year
  Sex: Male
  Weight: 133 kg

DRUGS (20)
  1. VIOXX [Suspect]
     Indication: ARTHROPATHY
     Route: 048
     Dates: start: 19990101, end: 20041029
  2. VIOXX [Suspect]
     Route: 048
     Dates: start: 19990101, end: 20041029
  3. VIOXX [Suspect]
     Indication: ARTHRITIS
     Route: 048
     Dates: start: 19990101, end: 20041029
  4. VIOXX [Suspect]
     Route: 048
     Dates: start: 19990101, end: 20041029
  5. INSULIN [Concomitant]
     Route: 065
  6. GLUCOPHAGE [Concomitant]
     Route: 065
  7. NEXIUM [Concomitant]
     Route: 065
  8. POTASSIUM CHLORIDE [Concomitant]
     Route: 065
  9. SYNTHROID [Concomitant]
     Route: 065
  10. HYDROXYZINE HYDROCHLORIDE [Concomitant]
     Route: 065
  11. NEURONTIN [Concomitant]
     Route: 065
  12. COREG [Concomitant]
     Route: 065
  13. LOPID [Concomitant]
     Route: 065
  14. COUMADIN [Concomitant]
     Route: 065
  15. LASIX [Concomitant]
     Route: 065
  16. HUMULIN [Concomitant]
     Route: 065
  17. DEMADEX [Concomitant]
     Route: 065
  18. COMBIVENT [Concomitant]
     Route: 065
  19. FLOVENT [Concomitant]
     Route: 065
  20. LORCET-HD [Concomitant]
     Route: 065

REACTIONS (7)
  - CORONARY ARTERY DISEASE [None]
  - MOTOR DYSFUNCTION [None]
  - MYOCARDIAL INFARCTION [None]
  - OEDEMA PERIPHERAL [None]
  - PAIN IN EXTREMITY [None]
  - PULMONARY EMBOLISM [None]
  - TREATMENT NONCOMPLIANCE [None]
